FAERS Safety Report 7029124-X (Version None)
Quarter: 2010Q4

REPORT INFORMATION
  Report Type: 
  Country: None (occurrence: None)
  Receive Date: 20101005
  Receipt Date: 20100928
  Transmission Date: 20110411
  Serious: Yes (Other)
  Sender: FDA-Public Use
  Company Number: US-RB-013231-10

PATIENT
  Age: 42 Year
  Sex: Male

DRUGS (1)
  1. SUBOXONE TABLET [Suspect]
     Indication: PRODUCT USED FOR UNKNOWN INDICATION
     Dosage: DOSING INFORMATION UNKNOWN
     Route: 065

REACTIONS (5)
  - CONCUSSION [None]
  - LOSS OF CONSCIOUSNESS [None]
  - NEURALGIA [None]
  - ROAD TRAFFIC ACCIDENT [None]
  - TOOTH LOSS [None]
